FAERS Safety Report 5217912-1 (Version None)
Quarter: 2006Q4

REPORT INFORMATION
  Report Type: 
  Country: None (occurrence: None)
  Receive Date: 20061130
  Receipt Date: 20060803
  Transmission Date: 20070319
  Serious: Yes (Hospitalization)
  Sender: FDA-Public Use
  Company Number: US200608000999

PATIENT
  Age: 37 Year
  Sex: Male

DRUGS (6)
  1. ZYPREXA [Suspect]
     Indication: BIPOLAR DISORDER
     Dosage: 40 MG, ORAL
     Route: 048
  2. CYMBALTA [Suspect]
     Indication: PAIN
     Dosage: SEE IMAGE
     Route: 048
     Dates: start: 20050101
  3. PRILOSEC [Concomitant]
  4. INSULIN (INSULIN) [Concomitant]
  5. CREON [Concomitant]
  6. ZOLOFT [Concomitant]

REACTIONS (7)
  - ABDOMINAL DISTENSION [None]
  - FATIGUE [None]
  - GENERAL PHYSICAL HEALTH DETERIORATION [None]
  - OEDEMA PERIPHERAL [None]
  - PRESCRIBED OVERDOSE [None]
  - VOMITING [None]
  - WEIGHT INCREASED [None]
